FAERS Safety Report 21364106 (Version 1)
Quarter: 2022Q3

REPORT INFORMATION
  Report Type: Spontaneous
  Country: US (occurrence: US)
  Receive Date: 20220922
  Receipt Date: 20220922
  Transmission Date: 20221026
  Serious: Yes (Other)
  Sender: FDA-Public Use
  Company Number: US-PFIZER INC-202201177620

PATIENT
  Age: 85 Year
  Sex: Female

DRUGS (1)
  1. IBRANCE [Suspect]
     Active Substance: PALBOCICLIB
     Indication: Breast cancer female
     Dosage: 125 MG CYCLIC (TAKE 1 TABLET BY MOUTH ONCE DAILY ON DAY1 TO 21 FOLLOW BY 7 DAY OF REST REPEAT EVERY)
     Route: 048

REACTIONS (1)
  - Leg amputation [Unknown]
